FAERS Safety Report 5571795-9 (Version None)
Quarter: 2007Q4

REPORT INFORMATION
  Report Type: 
  Country: None (occurrence: None)
  Receive Date: 20071221
  Receipt Date: 20071211
  Transmission Date: 20080405
  Serious: Yes (Hospitalization)
  Sender: FDA-Public Use
  Company Number: B0500352A

PATIENT
  Age: 17 Year
  Sex: Female

DRUGS (1)
  1. LAMOTRIGINE [Suspect]
     Route: 065

REACTIONS (3)
  - ELEVATED MOOD [None]
  - ENERGY INCREASED [None]
  - MANIA [None]
